FAERS Safety Report 8609595-5 (Version None)
Quarter: 2012Q3

REPORT INFORMATION
  Report Type: 
  Country: None (occurrence: None)
  Receive Date: 20120423
  Receipt Date: 20090505
  Transmission Date: 20120928
  Serious: Yes (Hospitalization, Disabling, Other)
  Sender: FDA-Public Use
  Company Number: PHEH2008US11054

PATIENT
  Age: 80 Year
  Sex: Female

DRUGS (1)
  1. FEMARA [Suspect]
     Dosage: 2.5 MG, QD, ORAL
     Route: 048
     Dates: start: 20080814, end: 20081211

REACTIONS (10)
  - DECREASED APPETITE [None]
  - PAIN IN EXTREMITY [None]
  - BREAST CANCER METASTATIC [None]
  - ARTHRALGIA [None]
  - RADIOTHERAPY [None]
  - NEOPLASM MALIGNANT [None]
  - DRUG INEFFECTIVE [None]
  - BACK PAIN [None]
  - WEIGHT DECREASED [None]
  - ASTHENIA [None]
